FAERS Safety Report 7414122-4 (Version None)
Quarter: 2011Q1

REPORT INFORMATION
  Report Type: 
  Country: None (occurrence: None)
  Receive Date: 20110302
  Receipt Date: 20101109
  Transmission Date: 20110831
  Serious: No
  Sender: FDA-Public Use
  Company Number: 018384

PATIENT
  Sex: Female
  Weight: 68 kg

DRUGS (5)
  1. FOLIC ACID [Concomitant]
  2. PROBIOTICA [Concomitant]
  3. COLESTIPOL HYDROCHLORIDE [Concomitant]
  4. ASACOL [Concomitant]
  5. CIMZIA [Suspect]
     Indication: CROHN'S DISEASE
     Dosage: 400 MG 1X/MONTH SUBCUTANEOUS
     Route: 058
     Dates: start: 20100701

REACTIONS (14)
  - INFLUENZA LIKE ILLNESS [None]
  - INJECTION SITE PARAESTHESIA [None]
  - PRODUCT QUALITY ISSUE [None]
  - FEELING ABNORMAL [None]
  - ABDOMINAL PAIN [None]
  - NEEDLE ISSUE [None]
  - INJECTION SITE HAEMATOMA [None]
  - URINARY TRACT INFECTION [None]
  - DIARRHOEA [None]
  - MALAISE [None]
  - FATIGUE [None]
  - DEPRESSION [None]
  - INJECTION SITE EXTRAVASATION [None]
  - PARAESTHESIA [None]
